FAERS Safety Report 5108321-4 (Version None)
Quarter: 2006Q3

REPORT INFORMATION
  Report Type: 
  Country: None (occurrence: None)
  Receive Date: 20060914
  Receipt Date: 20060914
  Transmission Date: 20061208
  Serious: Yes (Other)
  Sender: FDA-Public Use
  Company Number: None

PATIENT
  Age: 72 Year
  Sex: Male
  Weight: 76.2043 kg

DRUGS (1)
  1. LEUKINE [Suspect]
     Indication: NEUTROPENIA
     Dosage: 475 MG DAILY SQ
     Route: 058
     Dates: start: 20060913, end: 20060913

REACTIONS (2)
  - CHILLS [None]
  - TREMOR [None]
